FAERS Safety Report 8419921-8 (Version None)
Quarter: 2012Q2

REPORT INFORMATION
  Report Type: 
  Country: None (occurrence: None)
  Receive Date: 20120607
  Receipt Date: 20120530
  Transmission Date: 20120825
  Serious: Yes (Other)
  Sender: FDA-Public Use
  Company Number: AU-ABBOTT-12P-008-0934639-00

PATIENT
  Weight: 44.7 kg

DRUGS (1)
  1. RITONAVIR [Suspect]
     Indication: HIV INFECTION
     Dosage: 100MG DAILY DOSE

REACTIONS (8)
  - IMMUNE RECONSTITUTION SYNDROME [None]
  - CD4 LYMPHOCYTES DECREASED [None]
  - PERIPHERAL SENSORIMOTOR NEUROPATHY [None]
  - SPINAL OSTEOARTHRITIS [None]
  - MALNUTRITION [None]
  - TREATMENT NONCOMPLIANCE [None]
  - MYELOPATHY [None]
  - HERPES SIMPLEX [None]
